FAERS Safety Report 12982305 (Version 8)
Quarter: 2018Q1

REPORT INFORMATION
  Report Type: Spontaneous
  Country: US (occurrence: US)
  Receive Date: 20161129
  Receipt Date: 20180212
  Transmission Date: 20180508
  Serious: No
  Sender: FDA-Public Use
  Company Number: US-PFIZER INC-2016526572

PATIENT
  Age: 73 Year
  Sex: Female
  Weight: 72 kg

DRUGS (8)
  1. IBRANCE [Suspect]
     Active Substance: PALBOCICLIB
     Dosage: 125 MG, CYCLIC (DAYS 1-21 Q 28 DAYS)
     Route: 048
  2. IBRANCE [Suspect]
     Active Substance: PALBOCICLIB
     Dosage: 125 MG, CYCLIC (DAYS 1-21 Q 28 DAYS)
     Route: 048
  3. IBRANCE [Suspect]
     Active Substance: PALBOCICLIB
     Dosage: 125 MG, CYCLIC (DAYS 1-21 Q 28 DAYS)
     Route: 048
  4. IBRANCE [Suspect]
     Active Substance: PALBOCICLIB
     Dosage: 125 MG, CYCLIC (DAYS 1-21 Q 28 DAYS)
     Route: 048
     Dates: start: 20161112
  5. IBRANCE [Suspect]
     Active Substance: PALBOCICLIB
     Dosage: 125 MG, CYCLIC (DAYS 1-21 Q 28 DAYS)
     Route: 048
  6. ARIMIDEX [Suspect]
     Active Substance: ANASTROZOLE
     Dosage: UNK
  7. IBRANCE [Suspect]
     Active Substance: PALBOCICLIB
     Indication: BREAST CANCER METASTATIC
     Dosage: 125 MG, CYCLIC (DAYS 1-21 Q 28 DAYS)
     Route: 048
     Dates: start: 20161112
  8. IBRANCE [Suspect]
     Active Substance: PALBOCICLIB
     Dosage: 125 MG, CYCLIC (DAYS 1-21 Q 28 DAYS)
     Route: 048

REACTIONS (20)
  - Blood glucose increased [Unknown]
  - Insomnia [Unknown]
  - Hypertension [Recovered/Resolved]
  - Dysgeusia [Unknown]
  - Product use in unapproved indication [Unknown]
  - Erythema [Unknown]
  - Weight decreased [Unknown]
  - Poor quality sleep [Unknown]
  - Night sweats [Unknown]
  - Joint swelling [Unknown]
  - Laboratory test abnormal [Unknown]
  - Hot flush [Unknown]
  - Fatigue [Not Recovered/Not Resolved]
  - Decreased appetite [Unknown]
  - Dehydration [Unknown]
  - Full blood count decreased [Unknown]
  - Chills [Unknown]
  - Malaise [Unknown]
  - Alopecia [Unknown]
  - Feeling hot [Unknown]

NARRATIVE: CASE EVENT DATE: 201611
